FAERS Safety Report 8135091-8 (Version None)
Quarter: 2012Q1

REPORT INFORMATION
  Report Type: 
  Country: None (occurrence: None)
  Receive Date: 20120214
  Receipt Date: 20120201
  Transmission Date: 20120608
  Serious: Yes (Other)
  Sender: FDA-Public Use
  Company Number: JP-UCBSA-048075

PATIENT
  Age: 26 Year
  Sex: Female
  Weight: 46 kg

DRUGS (15)
  1. KEPPRA [Suspect]
     Dosage: DAILY DOSE:1875MG
     Route: 048
     Dates: start: 20111109, end: 20111112
  2. KEPPRA [Suspect]
     Dosage: DAILY DOSE: 1125MG
     Route: 048
     Dates: start: 20110927, end: 20111023
  3. PHENYTOIN SODIUM CAP [Concomitant]
     Dosage: DAILY DOSE: 200MG
     Route: 048
     Dates: end: 20111113
  4. FOLIC ACID [Concomitant]
     Dosage: DAILY DOSE: 5MG
     Route: 048
     Dates: start: 20110418, end: 20111121
  5. TEGRETOL [Concomitant]
     Dosage: DAILY DOSE:600MG
     Route: 048
     Dates: start: 20111114
  6. KEPPRA [Suspect]
     Indication: EPILEPSY
     Dosage: DAILY DOSE: 2125MG
     Route: 048
     Dates: start: 20111113, end: 20111208
  7. KEPPRA [Suspect]
     Dosage: DAILY DOSE:1500MG
     Route: 048
     Dates: start: 20111028, end: 20111103
  8. KEPPRA [Suspect]
     Route: 048
     Dates: start: 20110328, end: 20110725
  9. PHENOBARBITAL TAB [Concomitant]
     Dosage: DAILY DOSE: 30MG
  10. KEPPRA [Suspect]
     Dosage: DAILY DOSE: 1625MG
     Route: 048
     Dates: start: 20111104, end: 20111108
  11. KEPPRA [Suspect]
     Dosage: DAILY DOSE: 1375MG
     Route: 048
     Dates: start: 20111024, end: 20111027
  12. KEPPRA [Suspect]
     Dosage: DAILY DOSE:500MG
     Route: 048
     Dates: start: 20110726, end: 20110926
  13. TEGRETOL [Concomitant]
     Dosage: DAILY DOSE:200MG
     Route: 048
     Dates: end: 20111027
  14. TEGRETOL [Concomitant]
     Dosage: DAILY DOSE: 550MG
     Route: 048
     Dates: start: 20111028, end: 20111113
  15. PHENYTOIN SODIUM CAP [Concomitant]
     Dosage: DAILY DOSE: 250MG
     Route: 048
     Dates: start: 20111114

REACTIONS (2)
  - CAESAREAN SECTION [None]
  - PREGNANCY [None]
